FAERS Safety Report 10735291 (Version 1)
Quarter: 2015Q1

REPORT INFORMATION
  Report Type: Spontaneous
  Country: US (occurrence: US)
  Receive Date: 20150125
  Receipt Date: 20150125
  Transmission Date: 20150721
  Serious: Yes (Hospitalization)
  Sender: FDA-Public Use
  Company Number: US-JNJFOC-20150106138

PATIENT
  Age: 19 Year
  Sex: Female

DRUGS (3)
  1. APAP [Suspect]
     Active Substance: ACETAMINOPHEN
     Route: 048
  2. ALL OTHER THERAPEUTIC PRODUCT [Concomitant]
     Active Substance: UNSPECIFIED INGREDIENT
     Indication: PRODUCT USED FOR UNKNOWN INDICATION
     Route: 065
  3. APAP [Suspect]
     Active Substance: ACETAMINOPHEN
     Indication: SUICIDE ATTEMPT
     Dosage: TAKEN }32,000 MG.15; 500 MG ON FRIDAY, 10 ON SUNDAY AND 25 ON 02-MAY-2005
     Route: 048

REACTIONS (2)
  - Intentional overdose [Unknown]
  - Abdominal pain [Unknown]
